FAERS Safety Report 9434751 (Version 2)
Quarter: 2013Q4

REPORT INFORMATION
  Report Type: Spontaneous
  Country: IT (occurrence: IT)
  Receive Date: 20130801
  Receipt Date: 20131112
  Transmission Date: 20140711
  Serious: Yes (Other)
  Sender: FDA-Public Use
  Company Number: IT-SANOFI-AVENTIS-2013SA074507

PATIENT
  Age: 85 Year
  Sex: Female

DRUGS (5)
  1. LASIX [Suspect]
     Indication: HYPERTENSION
     Route: 048
     Dates: start: 20130701, end: 20130706
  2. HYDROCHLOROTHIAZIDE/LOSARTAN POTASSIUM [Concomitant]
     Indication: HYPERTENSION
     Route: 048
  3. DILATREND [Concomitant]
     Dosage: STRENGTH: 6.25MG
  4. COUMADIN [Concomitant]
     Dosage: STRENGTH: 5MG
  5. CANRENONE [Concomitant]
     Route: 048

REACTIONS (3)
  - Dizziness [Recovering/Resolving]
  - Hyponatraemia [Recovering/Resolving]
  - International normalised ratio abnormal [Recovering/Resolving]
